FAERS Safety Report 5962154-5 (Version None)
Quarter: 2008Q4

REPORT INFORMATION
  Report Type: 
  Country: None (occurrence: None)
  Receive Date: 20081121
  Receipt Date: 20081118
  Transmission Date: 20090506
  Serious: Yes (Death)
  Sender: FDA-Public Use
  Company Number: JP-NOVOPROD-281573

PATIENT
  Age: 2 Year

DRUGS (1)
  1. NOVOSEVEN [Suspect]
     Indication: POST PROCEDURAL HAEMORRHAGE
     Dosage: EVERY 2 HRS, TOTAL NUMBER OF INJECTIONS 12 TIMES
     Route: 042
     Dates: start: 20081108

REACTIONS (1)
  - GRAFT VERSUS HOST DISEASE [None]
